FAERS Safety Report 19404721 (Version 8)
Quarter: 2022Q2

REPORT INFORMATION
  Report Type: Spontaneous
  Country: CA (occurrence: CA)
  Receive Date: 20210611
  Receipt Date: 20220605
  Transmission Date: 20220720
  Serious: Yes (Hospitalization)
  Sender: FDA-Public Use
  Company Number: CA-CELLTRION INC.-2021CA008011

PATIENT

DRUGS (12)
  1. INFLECTRA [Suspect]
     Active Substance: INFLIXIMAB-DYYB
     Indication: Colitis ulcerative
     Dosage: 10 MG/KG, AT WEEKS 0,2,6 AND THEN Q 8 WEEKS
     Route: 042
     Dates: start: 20210518
  2. INFLECTRA [Suspect]
     Active Substance: INFLIXIMAB-DYYB
     Dosage: 10 MG/KG, AT WEEKS 0,2,6 AND THEN Q 8 WEEKS
     Route: 042
     Dates: start: 20210523
  3. INFLECTRA [Suspect]
     Active Substance: INFLIXIMAB-DYYB
     Dosage: 1 DF
     Route: 042
     Dates: start: 202105
  4. INFLECTRA [Suspect]
     Active Substance: INFLIXIMAB-DYYB
     Dosage: 10 MG/KG DOSAGE INFORMATION NOT CONFIRMED, PATIENT IS A HOSPITAL START
     Route: 042
     Dates: start: 202105, end: 2021
  5. INFLECTRA [Suspect]
     Active Substance: INFLIXIMAB-DYYB
     Dosage: 5 MG/KG, AT WEEKS 0,2,6 AND THEN Q 8 WEEKS
     Route: 042
     Dates: start: 20210714
  6. INFLECTRA [Suspect]
     Active Substance: INFLIXIMAB-DYYB
     Dosage: 5 MG/KG, AT WEEKS 0,2,6 AND THEN Q 8 WEEKS
     Route: 042
     Dates: start: 20210729
  7. INFLECTRA [Suspect]
     Active Substance: INFLIXIMAB-DYYB
     Dosage: 5 MG/KG, AT WEEKS 0,2,6 AND THEN Q 8 WEEKS
     Route: 042
     Dates: start: 20210826
  8. INFLECTRA [Suspect]
     Active Substance: INFLIXIMAB-DYYB
     Dosage: 5 MG/KG, AT WEEKS 0,2,6 AND THEN Q 8 WEEKS
     Route: 042
     Dates: start: 20211021
  9. INFLECTRA [Suspect]
     Active Substance: INFLIXIMAB-DYYB
     Dosage: 5 MG/KG, AT WEEKS 0,2,6 AND THEN Q 8 WEEKS
     Route: 042
     Dates: start: 20211209
  10. INFLECTRA [Suspect]
     Active Substance: INFLIXIMAB-DYYB
     Dosage: 5 MG/KG, AT WEEKS 0,2,6 AND THEN Q 8 WEEKS
     Route: 042
     Dates: start: 20220203
  11. INFLECTRA [Suspect]
     Active Substance: INFLIXIMAB-DYYB
     Dosage: 5 MG/KG, AT WEEKS 0,2,6 AND THEN Q 8 WEEKS
     Route: 042
     Dates: start: 20220427
  12. INFLECTRA [Suspect]
     Active Substance: INFLIXIMAB-DYYB
     Dosage: 5 MG/KG, AT WEEKS 0,2,6 AND THEN Q 8 WEEKS
     Route: 042
     Dates: start: 20220526

REACTIONS (15)
  - Condition aggravated [Recovered/Resolved]
  - Malaise [Unknown]
  - Venous thrombosis [Unknown]
  - Thrombosis [Unknown]
  - Off label use [Unknown]
  - Inappropriate schedule of product administration [Unknown]
  - Incorrect dose administered [Unknown]
  - Fatigue [Unknown]
  - Arterial thrombosis [Unknown]
  - Panic reaction [Unknown]
  - Undersensing [Unknown]
  - Feeling cold [Unknown]
  - Alopecia [Not Recovered/Not Resolved]
  - Blood pressure decreased [Not Recovered/Not Resolved]
  - Perioral dermatitis [Unknown]

NARRATIVE: CASE EVENT DATE: 20210101
